FAERS Safety Report 14290321 (Version 1)
Quarter: 2017Q4

REPORT INFORMATION
  Report Type: Report from Study
  Country: US (occurrence: US)
  Receive Date: 20171215
  Receipt Date: 20171215
  Transmission Date: 20180321
  Serious: Yes (Other)
  Sender: FDA-Public Use
  Company Number: US-TEVA-2017-US-835063

PATIENT
  Sex: Male
  Weight: 48.12 kg

DRUGS (6)
  1. CLARAVIS [Suspect]
     Active Substance: ISOTRETINOIN
  2. MYORISAN [Suspect]
     Active Substance: ISOTRETINOIN
     Dates: start: 201709, end: 20171017
  3. CLARAVIS [Suspect]
     Active Substance: ISOTRETINOIN
  4. MYORISAN [Suspect]
     Active Substance: ISOTRETINOIN
     Indication: ACNE CONGLOBATA
     Dates: start: 201706, end: 201708
  5. ZYRTEC [Concomitant]
     Active Substance: CETIRIZINE HYDROCHLORIDE
  6. VALTREX [Concomitant]
     Active Substance: VALACYCLOVIR HYDROCHLORIDE

REACTIONS (2)
  - Affective disorder [Recovered/Resolved]
  - Suicidal ideation [Recovered/Resolved]
